FAERS Safety Report 4341241-1 (Version None)
Quarter: 2004Q1

REPORT INFORMATION
  Report Type: 
  Country: None (occurrence: None)
  Receive Date: 20040329
  Receipt Date: 20040225
  Transmission Date: 20041129
  Serious: No
  Sender: FDA-Public Use
  Company Number: 04P-163-0251273-00

PATIENT
  Age: 82 Year
  Sex: Female
  Weight: 57.6068 kg

DRUGS (14)
  1. HUMIRA [Suspect]
     Indication: RHEUMATOID ARTHRITIS
     Dosage: 40 MG, 1 IN 2 WK, SUBCUTANEOUS
     Route: 058
     Dates: start: 20040108
  2. METHOTREXATE [Concomitant]
  3. ATENOLOL [Concomitant]
  4. LOVASTATIN [Concomitant]
  5. CLONAZEPAM [Concomitant]
  6. RALOXIFENE HCL [Concomitant]
  7. FUROSEMIDE [Concomitant]
  8. FOLIC ACID [Concomitant]
  9. SOFT GEL [Concomitant]
  10. ACETAMINOPHEN [Concomitant]
  11. CALCIUM [Concomitant]
  12. MULTI-VITAMINS [Concomitant]
  13. PARIDIN C [Concomitant]
  14. OMEPRAZOLE [Concomitant]

REACTIONS (1)
  - INJECTION SITE ERYTHEMA [None]
